FAERS Safety Report 24368477 (Version 1)
Quarter: 2024Q3

REPORT INFORMATION
  Report Type: Report from Study
  Country: GB (occurrence: GB)
  Receive Date: 20240926
  Receipt Date: 20240926
  Transmission Date: 20241017
  Serious: Yes (Other)
  Sender: SAMSUNG BIOEPIS
  Company Number: GB-SAMSUNG BIOEPIS-SB-2024-28813

PATIENT
  Age: 35 Year
  Sex: Female

DRUGS (1)
  1. IMRALDI [Suspect]
     Active Substance: ADALIMUMAB
     Indication: Ankylosing spondylitis
     Dosage: 40 MG/0.8ML;
     Route: 058
     Dates: start: 202409

REACTIONS (2)
  - Anaphylactic shock [Unknown]
  - Vomiting [Unknown]

NARRATIVE: CASE EVENT DATE: 20240919
